FAERS Safety Report 21009623 (Version 8)
Quarter: 2023Q1

REPORT INFORMATION
  Report Type: Report from Study
  Country: CN (occurrence: CN)
  Receive Date: 20220627
  Receipt Date: 20230220
  Transmission Date: 20230417
  Serious: Yes (Hospitalization)
  Sender: FDA-Public Use
  Company Number: CN-Merck Healthcare KGaA-9331954

PATIENT
  Age: 61 Year
  Sex: Female
  Weight: 43 kg

DRUGS (14)
  1. CETUXIMAB [Suspect]
     Active Substance: CETUXIMAB
     Indication: Colorectal cancer metastatic
     Dosage: 536 MG, UNKNOWN
     Route: 041
     Dates: start: 20220218
  2. CETUXIMAB [Suspect]
     Active Substance: CETUXIMAB
     Dosage: 335 MG, UNKNOWN
     Route: 041
     Dates: start: 20220602, end: 20220609
  3. CETUXIMAB [Suspect]
     Active Substance: CETUXIMAB
     Dosage: UNK UNK, UNKNOWN
     Route: 041
     Dates: start: 20220616
  4. OXALIPLATIN [Concomitant]
     Active Substance: OXALIPLATIN
     Indication: Colorectal cancer metastatic
     Dosage: 114 MG, DAILY
     Route: 041
     Dates: start: 20220218
  5. OXALIPLATIN [Concomitant]
     Active Substance: OXALIPLATIN
     Dosage: 94 MG, DAILY
     Route: 041
     Dates: start: 20220527, end: 20220609
  6. OXALIPLATIN [Concomitant]
     Active Substance: OXALIPLATIN
     Dosage: 80 MG, UNKNOWN
     Route: 041
     Dates: start: 20220625
  7. LEUCOVORIN CALCIUM [Concomitant]
     Active Substance: LEUCOVORIN CALCIUM
     Indication: Colorectal cancer metastatic
     Dosage: 536 MG, DAILY
     Route: 041
     Dates: start: 20220218
  8. LEUCOVORIN CALCIUM [Concomitant]
     Active Substance: LEUCOVORIN CALCIUM
     Dosage: 536 MG, DAILY
     Route: 041
     Dates: start: 20220527, end: 20220609
  9. LEUCOVORIN CALCIUM [Concomitant]
     Active Substance: LEUCOVORIN CALCIUM
     Dosage: UNK UNK, UNKNOWN
     Route: 041
     Dates: start: 20220625
  10. FLUOROURACIL [Concomitant]
     Active Substance: FLUOROURACIL
     Indication: Colorectal cancer metastatic
     Dosage: 536 MG, DAILY
     Route: 041
     Dates: start: 20220218
  11. FLUOROURACIL [Concomitant]
     Active Substance: FLUOROURACIL
     Dosage: 3216 MG, DAILY
     Route: 041
     Dates: start: 20220218
  12. FLUOROURACIL [Concomitant]
     Active Substance: FLUOROURACIL
     Dosage: 402 MG, DAILY
     Route: 041
     Dates: start: 20220527, end: 20220609
  13. FLUOROURACIL [Concomitant]
     Active Substance: FLUOROURACIL
     Dosage: 2680 MG, UNKNOWN
     Route: 041
     Dates: start: 20220527, end: 20220609
  14. FLUOROURACIL [Concomitant]
     Active Substance: FLUOROURACIL
     Dosage: 2680 MG, UNKNOWN
     Route: 041
     Dates: start: 20220625

REACTIONS (2)
  - Platelet count decreased [Recovered/Resolved]
  - Neutrophil count decreased [Recovered/Resolved]

NARRATIVE: CASE EVENT DATE: 20220609
